FAERS Safety Report 16549486 (Version 2)
Quarter: 2019Q3

REPORT INFORMATION
  Report Type: Spontaneous
  Country: CZ (occurrence: CZ)
  Receive Date: 20190710
  Receipt Date: 20190826
  Transmission Date: 20191004
  Serious: Yes (Other)
  Sender: FDA-Public Use
  Company Number: CZ-AUROBINDO-AUR-APL-2019-038206

PATIENT

DRUGS (1)
  1. OLANZAPINE. [Suspect]
     Active Substance: OLANZAPINE
     Indication: MENTAL DISORDER
     Dosage: 10 MILLIGRAM
     Route: 065

REACTIONS (4)
  - Toxicity to various agents [Unknown]
  - Paradoxical embolism [Unknown]
  - Cerebral ischaemia [Unknown]
  - Embolism venous [Unknown]
